FAERS Safety Report 6663564-3 (Version None)
Quarter: 2010Q2

REPORT INFORMATION
  Report Type: 
  Country: None (occurrence: None)
  Receive Date: 20100401
  Receipt Date: 20100104
  Transmission Date: 20101027
  Serious: Yes (Death)
  Sender: FDA-Public Use
  Company Number: US-BAYER-201016848GPV

PATIENT
  Age: 18 Year
  Sex: Male

DRUGS (4)
  1. ALPRAZOLAM [Suspect]
  2. DEXTROMETHORPHAN [Suspect]
  3. CHLORPHENIRAMINE MALEATE [Suspect]
  4. OXYCODONE [Suspect]

REACTIONS (1)
  - DRUG TOXICITY [None]
